FAERS Safety Report 8763043 (Version 2)
Quarter: 2012Q4

REPORT INFORMATION
  Report Type: Spontaneous
  Country: DE (occurrence: None)
  Receive Date: 20120827
  Receipt Date: 20120906
  Transmission Date: 20130627
  Serious: Yes (Death)
  Sender: FDA-Public Use
  Company Number: DE-2012-2802

PATIENT
  Age: 71 Year
  Sex: Female

DRUGS (4)
  1. NAVELBINE [Suspect]
     Indication: METASTATIC BREAST CANCER
     Dates: start: 20120711, end: 20120711
  2. ONDANSETRON [Concomitant]
  3. VERGENTAN [Concomitant]
  4. THYROID THERAPY [Concomitant]

REACTIONS (1)
  - Respiratory disorder [None]
